FAERS Safety Report 7076236-0 (Version None)
Quarter: 2010Q4

REPORT INFORMATION
  Report Type: 
  Country: None (occurrence: None)
  Receive Date: 20101101
  Receipt Date: 20101020
  Transmission Date: 20110411
  Serious: Yes (Other)
  Sender: FDA-Public Use
  Company Number: BR-US-EMD SERONO, INC.-7023646

PATIENT
  Sex: Female

DRUGS (8)
  1. REBIF [Suspect]
     Dates: start: 20060530, end: 20100601
  2. PREDNISONE [Concomitant]
  3. BACLOFEN [Concomitant]
  4. CARBAMAZEPINE [Concomitant]
  5. SULFAMETAZOL [Concomitant]
  6. TRIMETHOPRIM [Concomitant]
  7. OMEPRAZOLE [Concomitant]
  8. RETEMIC [Concomitant]

REACTIONS (2)
  - MULTIPLE SCLEROSIS RELAPSE [None]
  - NEUROMYELITIS OPTICA [None]
